FAERS Safety Report 5283931-2 (Version None)
Quarter: 2007Q2

REPORT INFORMATION
  Report Type: 
  Country: None (occurrence: None)
  Receive Date: 20070402
  Receipt Date: 20070227
  Transmission Date: 20071010
  Serious: Yes (Life-Threatening, Hospitalization, Other)
  Sender: FDA-Public Use
  Company Number: JP-PFIZER INC-2007018566

PATIENT
  Age: 79 Year
  Sex: Female

DRUGS (6)
  1. MIGLITOL TABLET [Suspect]
     Indication: DIABETES MELLITUS
     Dosage: DAILY DOSE:150MG
     Route: 048
     Dates: start: 20070205, end: 20070223
  2. GLYBURIDE [Concomitant]
     Indication: DIABETES MELLITUS
     Route: 048
  3. SIMVASTATIN [Concomitant]
     Indication: HYPERCHOLESTEROLAEMIA
     Route: 048
     Dates: start: 20020702
  4. SINLESTAL [Concomitant]
     Indication: HYPERCHOLESTEROLAEMIA
     Route: 048
     Dates: start: 20020702
  5. EPADEL [Concomitant]
     Route: 048
     Dates: start: 20020702
  6. ROCALTROL [Concomitant]
     Route: 048
     Dates: start: 20020702

REACTIONS (4)
  - ACUTE MYOCARDIAL INFARCTION [None]
  - HEART INJURY [None]
  - MULTI-ORGAN FAILURE [None]
  - PANCREATITIS ACUTE [None]
